FAERS Safety Report 23613430 (Version 1)
Quarter: 2024Q1

REPORT INFORMATION
  Report Type: Spontaneous
  Country: FR (occurrence: FR)
  Receive Date: 20240308
  Receipt Date: 20240308
  Transmission Date: 20240410
  Serious: No
  Sender: FDA-Public Use
  Company Number: FR-JAZZ PHARMACEUTICALS-2024-FR-001148

PATIENT

DRUGS (1)
  1. XYREM [Suspect]
     Active Substance: SODIUM OXYBATE
     Indication: Product used for unknown indication
     Dosage: 180 MILLILITER

REACTIONS (2)
  - Hypersensitivity [Unknown]
  - Off label use [Unknown]
